FAERS Safety Report 5234650-X (Version None)
Quarter: 2007Q1

REPORT INFORMATION
  Report Type: 
  Country: None (occurrence: None)
  Receive Date: 20070209
  Receipt Date: 20070126
  Transmission Date: 20070707
  Serious: Yes (Hospitalization)
  Sender: FDA-Public Use
  Company Number: US-ELI_LILLY_AND_COMPANY-US200609002404

PATIENT
  Age: 68 Year
  Sex: Female
  Weight: 78.911 kg

DRUGS (10)
  1. NOVOLIN N [Concomitant]
     Dosage: UNK, UNK
     Dates: start: 20050525
  2. BYETTA [Concomitant]
     Indication: DIABETES MELLITUS NON-INSULIN-DEPENDENT
     Dosage: 5 UG, 2/D
     Route: 058
     Dates: start: 20050908, end: 20060101
  3. BYETTA [Concomitant]
     Dosage: 10 UG, 2/D
     Route: 058
     Dates: start: 20060101
  4. HUMALOG MIX 75/25 [Suspect]
     Dates: start: 20050525
  5. EVISTA [Concomitant]
     Dates: start: 20050525
  6. AVANDAMET [Concomitant]
     Dates: start: 20050908
  7. ASPIRIN [Concomitant]
     Dates: start: 20050204
  8. AVAPRO [Concomitant]
     Dates: start: 20050908
  9. PLAVIX [Concomitant]
     Dates: start: 20050204
  10. TOPROL-XL [Concomitant]
     Dates: start: 20050204

REACTIONS (12)
  - ANAEMIA [None]
  - ANAEMIA VITAMIN B12 DEFICIENCY [None]
  - BLOOD GLUCOSE INCREASED [None]
  - CHILLS [None]
  - CORONARY ARTERY DISEASE [None]
  - DECREASED APPETITE [None]
  - GLYCOSYLATED HAEMOGLOBIN INCREASED [None]
  - HUNGER [None]
  - HYPOGLYCAEMIA [None]
  - PERIPHERAL COLDNESS [None]
  - SLUGGISHNESS [None]
  - WEIGHT DECREASED [None]
